FAERS Safety Report 5757943-6 (Version None)
Quarter: 2008Q2

REPORT INFORMATION
  Report Type: 
  Country: None (occurrence: None)
  Receive Date: 20080530
  Receipt Date: 20080519
  Transmission Date: 20081010
  Serious: Yes (Death, Hospitalization, Other)
  Sender: FDA-Public Use
  Company Number: 236872K07USA

PATIENT
  Age: 37 Year
  Sex: Female

DRUGS (6)
  1. REBIF [Suspect]
     Indication: MULTIPLE SCLEROSIS
     Dosage: 44 MCG, 3 IN 1 WEEKS, SUBCUTANEOUS
     Route: 058
     Dates: start: 20060217, end: 20070803
  2. STEROID (CORTICOSTEROID NOS) [Suspect]
     Dosage: INTRAVENOUS (NOT OTHERWISE SPECIFIED)
     Route: 042
  3. CELEBREX [Concomitant]
  4. B12 (CYANOCOBALAMIN) [Concomitant]
  5. DILANTIN [Concomitant]
  6. LABETALOL HCL [Concomitant]

REACTIONS (7)
  - BLOOD PRESSURE INCREASED [None]
  - CARDIAC ARREST [None]
  - CEREBRAL HAEMORRHAGE [None]
  - HYDROCEPHALUS [None]
  - INTRAVENTRICULAR HAEMORRHAGE [None]
  - OPTIC NEURITIS [None]
  - UNRESPONSIVE TO STIMULI [None]
